FAERS Safety Report 7344245-X (Version None)
Quarter: 2011Q1

REPORT INFORMATION
  Report Type: 
  Country: None (occurrence: None)
  Receive Date: 20110310
  Receipt Date: 20100915
  Transmission Date: 20110831
  Serious: No
  Sender: FDA-Public Use
  Company Number: A0881281A

PATIENT
  Age: 32 Year
  Sex: Male

DRUGS (1)
  1. NICORETTE [Suspect]
     Route: 002
     Dates: start: 20080101

REACTIONS (3)
  - NICOTINE DEPENDENCE [None]
  - PAIN IN JAW [None]
  - NAUSEA [None]
